FAERS Safety Report 5394818-9 (Version None)
Quarter: 2007Q3

REPORT INFORMATION
  Report Type: 
  Country: None (occurrence: None)
  Receive Date: 20070720
  Receipt Date: 20070706
  Transmission Date: 20080115
  Serious: Yes (Hospitalization)
  Sender: FDA-Public Use
  Company Number: 1-15078015

PATIENT
  Age: 16 Year
  Sex: Male

DRUGS (1)
  1. SOLODYN [Suspect]
     Dosage: 1 TABLET DAILY ORALLY
     Route: 048
     Dates: start: 20070601

REACTIONS (2)
  - LOSS OF CONSCIOUSNESS [None]
  - RASH GENERALISED [None]
